FAERS Safety Report 5713084-5 (Version None)
Quarter: 2008Q2

REPORT INFORMATION
  Report Type: 
  Country: None (occurrence: None)
  Receive Date: 20080422
  Receipt Date: 20080411
  Transmission Date: 20081010
  Serious: Yes (Other)
  Sender: FDA-Public Use
  Company Number: PHHY2008CA04253

PATIENT
  Age: 76 Year
  Sex: Female

DRUGS (16)
  1. EXELON [Suspect]
     Indication: DEMENTIA ALZHEIMER'S TYPE
     Dosage: 1.5 MG, BID
     Route: 048
     Dates: start: 20080310, end: 20080323
  2. COUMADIN [Concomitant]
     Indication: ATRIAL FIBRILLATION
  3. VITAMIN B-12 [Concomitant]
  4. VITAMIN D [Concomitant]
  5. INDAPAMIDE [Concomitant]
  6. FEMARA [Concomitant]
  7. WARFARIN SODIUM [Concomitant]
  8. BISOPROLOL FUMARATE [Concomitant]
  9. LIPITOR [Concomitant]
  10. VERAPAMIL [Concomitant]
  11. ELTROXIN [Concomitant]
  12. METFORMIN HCL [Concomitant]
  13. CELEBREX [Concomitant]
  14. DETROL [Concomitant]
  15. TYLENOL [Concomitant]
     Dosage: UNK, PRN
  16. ATIVAN [Concomitant]
     Dosage: UNK, PRN

REACTIONS (3)
  - ATRIAL FIBRILLATION [None]
  - ELECTROCARDIOGRAM ABNORMAL [None]
  - ELECTROCARDIOGRAM QT PROLONGED [None]
